FAERS Safety Report 9775224 (Version 2)
Quarter: 2014Q1

REPORT INFORMATION
  Report Type: Report from Study
  Country: JP (occurrence: JP)
  Receive Date: 20131220
  Receipt Date: 20140212
  Transmission Date: 20141002
  Serious: Yes (Other)
  Sender: FDA-Public Use
  Company Number: JP-OTSUKA-JP-2013-16019

PATIENT
  Age: 88 Year
  Sex: Male

DRUGS (13)
  1. SAMSCA [Suspect]
     Indication: FLUID RETENTION
     Dosage: 15 MG MILLIGRAM(S), QAM
     Route: 048
     Dates: start: 20130611, end: 20130611
  2. SAMSCA [Suspect]
     Dosage: 7.5 MG MILLIGRAM(S), QAM
     Route: 048
     Dates: start: 20130612, end: 20130614
  3. NICORANDIL [Concomitant]
     Indication: CARDIAC FAILURE
     Dosage: 15 MG MILLIGRAM(S), DAILY DOSE
     Route: 048
  4. NICORANDIL [Concomitant]
     Indication: ANGINA PECTORIS
  5. BUFFERIN [Concomitant]
     Indication: CARDIAC FAILURE
     Dosage: 162 MG MILLIGRAM(S), DAILY DOSE
     Route: 048
  6. BUFFERIN [Concomitant]
     Indication: ANGINA PECTORIS
  7. NEUER [Concomitant]
     Indication: PROPHYLAXIS AGAINST GASTROINTESTINAL ULCER
     Dosage: 400 MG MILLIGRAM(S), DAILY DOSE
     Route: 048
  8. NITOROL [Concomitant]
     Indication: CARDIAC FAILURE
     Dosage: 40 MG MILLIGRAM(S), DAILY DOSE
     Route: 048
  9. NITOROL [Concomitant]
     Indication: ANGINA PECTORIS
  10. GAMOFA [Concomitant]
     Indication: GASTRITIS PROPHYLAXIS
     Dosage: 20 MG MILLIGRAM(S), DAILY DOSE
     Route: 048
  11. VASOLAN [Concomitant]
     Indication: ANGINA PECTORIS
     Dosage: 120 MG MILLIGRAM(S), DAILY DOSE
     Route: 048
  12. LASIX [Concomitant]
     Indication: CARDIAC FAILURE
     Dosage: 40 MG MILLIGRAM(S), DAILY DOSE
     Route: 048
  13. ALDACTONE A [Concomitant]
     Indication: CARDIAC FAILURE
     Dosage: 25 MG MILLIGRAM(S), DAILY DOSE
     Route: 048

REACTIONS (2)
  - Thirst [Recovered/Resolved]
  - Blood urea increased [Unknown]
